FAERS Safety Report 17035865 (Version 1)
Quarter: 2019Q4

REPORT INFORMATION
  Report Type: Spontaneous
  Country: US (occurrence: US)
  Receive Date: 20191114
  Receipt Date: 20191114
  Transmission Date: 20200122
  Serious: Yes (Other)
  Sender: FDA-Public Use
  Company Number: None

PATIENT
  Age: 28 Year
  Sex: Male
  Weight: 93.6 kg

DRUGS (7)
  1. LUVOX 100 MG [Concomitant]
  2. DEXTROAMPHET SACCHARAT, AMPHET ASPARTATE, DEXTROAMPHET SULFATE AND AMPHET SULFAT [Suspect]
     Active Substance: AMPHETAMINE ASPARTATE\AMPHETAMINE SULFATE\DEXTROAMPHETAMINE SACCHARATE\DEXTROAMPHETAMINE SULFATE
     Indication: ATTENTION DEFICIT/HYPERACTIVITY DISORDER
     Dosage: ?          QUANTITY:45 TABLET(S);?
     Route: 048
     Dates: start: 20190830, end: 20190915
  3. ADDERALL IR 20 MG [Concomitant]
  4. LISINOPRIL 10 MG [Concomitant]
     Active Substance: LISINOPRIL
  5. AMBIEN [Concomitant]
     Active Substance: ZOLPIDEM TARTRATE
  6. CLONIDINE 0.2 MG [Concomitant]
  7. ADDERALL XR [Concomitant]
     Active Substance: AMPHETAMINE ASPARTATE\AMPHETAMINE SULFATE\DEXTROAMPHETAMINE SACCHARATE\DEXTROAMPHETAMINE SULFATE

REACTIONS (4)
  - Product substitution issue [None]
  - Disturbance in attention [None]
  - Social avoidant behaviour [None]
  - Anxiety [None]

NARRATIVE: CASE EVENT DATE: 20190830
